FAERS Safety Report 8157284-6 (Version None)
Quarter: 2012Q1

REPORT INFORMATION
  Report Type: 
  Country: None (occurrence: None)
  Receive Date: 20120222
  Receipt Date: 20120208
  Transmission Date: 20120608
  Serious: Yes (Hospitalization)
  Sender: FDA-Public Use
  Company Number: FR-CELGENEUS-056-50794-12021045

PATIENT
  Sex: Female
  Weight: 50 kg

DRUGS (2)
  1. VIDAZA [Suspect]
     Dosage: 114 MILLIGRAM
     Route: 058
     Dates: start: 20120202
  2. REVLIMID [Suspect]
     Dosage: 10 MILLIGRAM
     Route: 048
     Dates: start: 20120202

REACTIONS (2)
  - GASTROENTERITIS RADIATION [None]
  - LOWER GASTROINTESTINAL HAEMORRHAGE [None]
